FAERS Safety Report 5242801-6 (Version None)
Quarter: 2007Q1

REPORT INFORMATION
  Report Type: 
  Country: None (occurrence: None)
  Receive Date: 20061201
  Receipt Date: 20060718
  Transmission Date: 20070707
  Serious: No
  Sender: FDA-Public Use
  Company Number: 2006PV013841

PATIENT
  Age: 58 Year
  Sex: Female
  Weight: 90.7194 kg

DRUGS (8)
  1. BYETTA [Suspect]
     Indication: DIABETES MELLITUS NON-INSULIN-DEPENDENT
     Dosage: SEE IMAGE
     Route: 058
     Dates: start: 20060315, end: 20060401
  2. BYETTA [Suspect]
     Indication: DIABETES MELLITUS NON-INSULIN-DEPENDENT
     Dosage: SEE IMAGE
     Route: 058
     Dates: start: 20060401, end: 20060501
  3. BYETTA [Suspect]
     Indication: DIABETES MELLITUS NON-INSULIN-DEPENDENT
     Dosage: SEE IMAGE
     Route: 058
     Dates: start: 20060501
  4. GLUCOTROL XL [Concomitant]
  5. AVANDIA [Concomitant]
  6. COGARD [Concomitant]
  7. ACCUPRIL [Concomitant]
  8. NORVASC [Concomitant]

REACTIONS (11)
  - BLOOD GLUCOSE DECREASED [None]
  - BLOOD GLUCOSE INCREASED [None]
  - CARDIAC FLUTTER [None]
  - DIZZINESS [None]
  - DRUG EFFECT DECREASED [None]
  - EAR DISCOMFORT [None]
  - FEELING JITTERY [None]
  - HEART RATE INCREASED [None]
  - INJECTION SITE PAIN [None]
  - NAUSEA [None]
  - WEIGHT INCREASED [None]
